FAERS Safety Report 7996667-1 (Version None)
Quarter: 2011Q4

REPORT INFORMATION
  Report Type: 
  Country: None (occurrence: None)
  Receive Date: 20111123
  Receipt Date: 20110801
  Transmission Date: 20120403
  Serious: No
  Sender: FDA-Public Use
  Company Number: 327137

PATIENT
  Age: 53 Year
  Sex: Female

DRUGS (1)
  1. VICTOZA [Suspect]
     Indication: DIABETES MELLITUS
     Dosage: SUBCUTANEOUS
     Route: 058
     Dates: start: 20101201, end: 20110201

REACTIONS (7)
  - LOCAL SWELLING [None]
  - WEIGHT INCREASED [None]
  - RETCHING [None]
  - THYROID NEOPLASM [None]
  - DRUG INEFFECTIVE [None]
  - THIRST [None]
  - COUGH [None]
